FAERS Safety Report 12869442 (Version 3)
Quarter: 2017Q3

REPORT INFORMATION
  Report Type: Report from Study
  Country: US (occurrence: US)
  Receive Date: 20161020
  Receipt Date: 20170910
  Transmission Date: 20171127
  Serious: Yes (Other)
  Sender: FDA-Public Use
  Company Number: US-AMGEN-USASL2016110228

PATIENT
  Age: 54 Year
  Sex: Female

DRUGS (3)
  1. LIPITOR [Suspect]
     Active Substance: ATORVASTATIN CALCIUM
     Indication: PRODUCT USED FOR UNKNOWN INDICATION
     Route: 065
  2. REPATHA [Suspect]
     Active Substance: EVOLOCUMAB
     Indication: HYPERCHOLESTEROLAEMIA
  3. REPATHA [Suspect]
     Active Substance: EVOLOCUMAB
     Indication: BLOOD CHOLESTEROL INCREASED
     Dosage: 140 MG, Q2WK
     Route: 065
     Dates: start: 201601, end: 201707

REACTIONS (11)
  - Amnesia [Unknown]
  - Mobility decreased [Unknown]
  - Oropharyngeal pain [Unknown]
  - Feeling abnormal [Recovered/Resolved]
  - Generalised oedema [Recovered/Resolved]
  - Asthenopia [Unknown]
  - Blood triglycerides increased [Unknown]
  - Weight increased [Unknown]
  - Influenza like illness [Unknown]
  - Weight loss poor [Unknown]
  - Injection site pain [Unknown]

NARRATIVE: CASE EVENT DATE: 2016
